FAERS Safety Report 8766458 (Version 1)
Quarter: 2012Q4

REPORT INFORMATION
  Report Type: 
  Country: GB (occurrence: GB)
  Receive Date: 20120904
  Receipt Date: 20120904
  Transmission Date: 20130627
  Serious: Yes (Other)
  Sender: FDA-Public Use
  Company Number: GB-ROCHE-1004567

PATIENT
  Age: 61 Year
  Sex: Male

DRUGS (6)
  1. MIRCERA [Suspect]
     Indication: NEPHROGENIC ANAEMIA
     Route: 058
     Dates: start: 20110203, end: 20110512
  2. OMEPRAZOLE [Concomitant]
     Indication: DYSPEPSIA
     Route: 048
     Dates: start: 20110128
  3. SEVELAMER [Concomitant]
     Route: 048
     Dates: start: 20100604
  4. ENALAPRIL [Concomitant]
     Indication: HYPERTENSION
     Route: 048
     Dates: start: 20091121
  5. FUROSEMIDE [Concomitant]
     Indication: HYPERTENSION
     Route: 048
     Dates: start: 20090821
  6. FERROUS SULPHATE [Concomitant]
     Indication: ANAEMIA
     Route: 048
     Dates: start: 20100709

REACTIONS (6)
  - Dizziness [Recovered/Resolved]
  - Vision blurred [Recovered/Resolved]
  - Nausea [Recovered/Resolved]
  - Disorientation [Recovered/Resolved]
  - Balance disorder [Recovered/Resolved]
  - Rash [Recovered/Resolved]
